FAERS Safety Report 7660334-4 (Version None)
Quarter: 2011Q3

REPORT INFORMATION
  Report Type: 
  Country: None (occurrence: None)
  Receive Date: 20110805
  Receipt Date: 20110726
  Transmission Date: 20111222
  Serious: Yes (Hospitalization)
  Sender: FDA-Public Use
  Company Number: US-ELI_LILLY_AND_COMPANY-US201107007533

PATIENT
  Sex: Male

DRUGS (4)
  1. HUMALOG [Suspect]
     Indication: DIABETES MELLITUS
     Dosage: 15 U, BID
  2. HUMALOG [Suspect]
     Dosage: 15 U, BID
  3. HUMALOG [Suspect]
     Dosage: 15 U, BID
     Dates: start: 20110701
  4. LEVEMIR [Concomitant]
     Dosage: UNK

REACTIONS (7)
  - INJECTION SITE PAIN [None]
  - MEMORY IMPAIRMENT [None]
  - DYSPHEMIA [None]
  - EXPIRED DRUG ADMINISTERED [None]
  - MYOCARDIAL INFARCTION [None]
  - CEREBROVASCULAR ACCIDENT [None]
  - CONFUSIONAL STATE [None]
